FAERS Safety Report 9071449 (Version 2)
Quarter: 2013Q2

REPORT INFORMATION
  Report Type: Spontaneous
  Country: DE (occurrence: DE)
  Receive Date: 20130129
  Receipt Date: 20130424
  Transmission Date: 20140414
  Serious: Yes (Death, Other)
  Sender: FDA-Public Use
  Company Number: DE-BAXTER-2013BAX002887

PATIENT
  Sex: Male
  Weight: 77 kg

DRUGS (3)
  1. HOLOXAN 3.00 G [Suspect]
     Indication: BRONCHIAL CARCINOMA
     Route: 042
     Dates: start: 20130204, end: 20130207
  2. M-DOLOR [Concomitant]
     Indication: PAIN
     Route: 065
  3. IBUPROFEN [Concomitant]
     Indication: PAIN
     Route: 065

REACTIONS (4)
  - Psychotic disorder [Recovered/Resolved]
  - Confusional state [Recovered/Resolved]
  - Aggression [Recovered/Resolved]
  - Bronchial carcinoma [Fatal]
